FAERS Safety Report 4454776-8 (Version None)
Quarter: 2004Q3

REPORT INFORMATION
  Report Type: 
  Country: None (occurrence: None)
  Receive Date: 20040921
  Receipt Date: 20040914
  Transmission Date: 20050211
  Serious: Yes (Other)
  Sender: FDA-Public Use
  Company Number: PHNU2004DE03230

PATIENT
  Age: 13 Year
  Sex: Male

DRUGS (1)
  1. MYFORTIC [Suspect]
     Indication: NEPHROTIC SYNDROME
     Dosage: 180 MG DAILY
     Route: 048
     Dates: start: 20040818

REACTIONS (3)
  - BLOOD LACTATE DEHYDROGENASE INCREASED [None]
  - RENAL DISORDER [None]
  - TREMOR [None]
